FAERS Safety Report 4725979-X (Version None)
Quarter: 2005Q3

REPORT INFORMATION
  Report Type: 
  Country: None (occurrence: None)
  Receive Date: 20050727
  Receipt Date: 20050719
  Transmission Date: 20060218
  Serious: Yes (Other)
  Sender: FDA-Public Use
  Company Number: CH-GLAXOSMITHKLINE-B0388639A

PATIENT
  Sex: Female

DRUGS (4)
  1. AMOXICILLIN AND CLAVULANATE POTASSIUM [Suspect]
     Route: 048
     Dates: start: 20040205, end: 20040214
  2. CLONAZEPAM [Suspect]
  3. FLOXYFRAL [Suspect]
  4. BIAXIN [Suspect]
     Route: 048
     Dates: start: 20040205, end: 20040214

REACTIONS (1)
  - ABORTION SPONTANEOUS [None]
